FAERS Safety Report 8007119-7 (Version None)
Quarter: 2011Q4

REPORT INFORMATION
  Report Type: 
  Country: None (occurrence: None)
  Receive Date: 20111227
  Receipt Date: 20111221
  Transmission Date: 20120403
  Serious: Yes (Disabling)
  Sender: FDA-Public Use
  Company Number: GB-PFIZER INC-2011303987

PATIENT
  Age: 81 Year
  Sex: Female
  Weight: 81 kg

DRUGS (2)
  1. BENDROFLUAZIDE [Concomitant]
     Indication: HYPERTENSION
     Dosage: 2.5 MG, UNK
     Route: 048
  2. SUTENT [Suspect]
     Indication: METASTATIC RENAL CELL CARCINOMA
     Dosage: 37.5 MG, 1X/DAY
     Route: 048
     Dates: start: 20110201

REACTIONS (4)
  - PYODERMA GANGRENOSUM [None]
  - STAPHYLOCOCCAL INFECTION [None]
  - LIMB INJURY [None]
  - SKIN ULCER [None]
